FAERS Safety Report 9764672 (Version 1)
Quarter: 2013Q4

REPORT INFORMATION
  Report Type: Spontaneous
  Country: US (occurrence: None)
  Receive Date: 20131213
  Receipt Date: 20131213
  Transmission Date: 20140711
  Serious: Yes (Other)
  Sender: FDA-Public Use
  Company Number: 2013SA023559

PATIENT
  Sex: Female

DRUGS (2)
  1. TROLAMINE SALICYLATE [Suspect]
     Indication: MUSCLE DISORDER
     Dosage: 1 DOSAGE FORM; UNKNOWN; TOPICAL
     Route: 061
     Dates: start: 20110301
  2. TROLAMINE SALICYLATE [Suspect]
     Indication: LIGAMENT SPRAIN
     Dosage: 1 DOSAGE FORM; UNKNOWN; TOPICAL
     Route: 061
     Dates: start: 20110301

REACTIONS (3)
  - Application site burn [None]
  - Erythema [None]
  - Blister [None]
